FAERS Safety Report 9608395 (Version 1)
Quarter: 2013Q4

REPORT INFORMATION
  Report Type: Spontaneous
  Country: IT (occurrence: IT)
  Receive Date: 20131009
  Receipt Date: 20131009
  Transmission Date: 20140711
  Serious: Yes (Other)
  Sender: FDA-Public Use
  Company Number: PHHY2013IT112093

PATIENT
  Age: 30 Year
  Sex: 0

DRUGS (6)
  1. CLOZAPINE [Suspect]
     Indication: PSYCHOTIC DISORDER
     Dosage: UNK
  2. CLOZAPINE [Suspect]
     Indication: DISTURBANCE IN SOCIAL BEHAVIOUR
     Dosage: 300 MG/DAY
  3. CLOZAPINE [Suspect]
     Indication: MENTAL DISABILITY
     Dosage: 25 MG/DAY
  4. CLOZAPINE [Suspect]
     Dosage: 100 MG/DAY
  5. ANTIPSYCHOTICS [Concomitant]
     Dosage: UNK UKN, UNK
  6. BENZODIAZEPINES [Concomitant]
     Dosage: UNK UKN, UNK

REACTIONS (4)
  - Delusion [Unknown]
  - Abnormal behaviour [Unknown]
  - White blood cell count decreased [Recovered/Resolved]
  - Neutropenia [Recovered/Resolved]
